FAERS Safety Report 25486172 (Version 1)
Quarter: 2025Q2

REPORT INFORMATION
  Report Type: Spontaneous
  Country: TH (occurrence: TH)
  Receive Date: 20250626
  Receipt Date: 20250626
  Transmission Date: 20250717
  Serious: Yes (Hospitalization)
  Sender: MERCK SHARP & DOHME LLC
  Company Number: TH-009507513-2242192

PATIENT
  Age: 64 Year
  Sex: Male
  Weight: 42.9 kg

DRUGS (4)
  1. KEYTRUDA [Suspect]
     Active Substance: PEMBROLIZUMAB
     Indication: Non-small cell lung cancer metastatic
     Dosage: DOSE DESCRIPTION : 100 MG, IV, Q 3 WEEKS?DAILY DOSE : 4.7 MILLIGRAM?REGIMEN DOSE : 100  MILLIGRAM
     Route: 042
     Dates: start: 20240904, end: 20240904
  2. KEYTRUDA [Suspect]
     Active Substance: PEMBROLIZUMAB
     Indication: Non-small cell lung cancer metastatic
     Dosage: DOSE DESCRIPTION : 100 MG, IV, Q 3 WEEKS?DAILY DOSE : 4.7 MILLIGRAM?REGIMEN DOSE : 100  MILLIGRAM
     Route: 042
     Dates: start: 20241218
  3. KEYTRUDA [Suspect]
     Active Substance: PEMBROLIZUMAB
     Indication: Non-small cell lung cancer metastatic
     Dosage: 12TH CYCLE
     Route: 042
     Dates: start: 20250423, end: 20250423
  4. KEYTRUDA [Suspect]
     Active Substance: PEMBROLIZUMAB
     Indication: Non-small cell lung cancer metastatic
     Dosage: 13TH CYCLE
     Route: 042
     Dates: start: 20250521, end: 20250521

REACTIONS (7)
  - Nausea [Recovering/Resolving]
  - Vomiting [Recovering/Resolving]
  - Inappropriate schedule of product administration [Unknown]
  - Fatigue [Unknown]
  - Cough [Unknown]
  - Off label use [Unknown]
  - Dizziness [Recovering/Resolving]

NARRATIVE: CASE EVENT DATE: 20240101
